FAERS Safety Report 7046952-5 (Version None)
Quarter: 2010Q4

REPORT INFORMATION
  Report Type: 
  Country: None (occurrence: None)
  Receive Date: 20101015
  Receipt Date: 20101006
  Transmission Date: 20110411
  Serious: Yes (Disabling)
  Sender: FDA-Public Use
  Company Number: AU-WYE-G06775910

PATIENT
  Sex: Female

DRUGS (1)
  1. EFFEXOR XR [Suspect]
     Dosage: REDUCING FROM 150MG TO 37.5MG OVER A PERIOD OF 6 MONTHS
     Dates: end: 20100901

REACTIONS (9)
  - DIZZINESS [None]
  - DRUG WITHDRAWAL SYNDROME [None]
  - DYSKINESIA [None]
  - FEELING ABNORMAL [None]
  - IMPAIRED WORK ABILITY [None]
  - INTENTIONAL DRUG MISUSE [None]
  - NAUSEA [None]
  - PARAESTHESIA [None]
  - PHOTOPHOBIA [None]
